FAERS Safety Report 9678249 (Version 1)
Quarter: 2013Q4

REPORT INFORMATION
  Report Type: Spontaneous
  Country: CA (occurrence: CA)
  Receive Date: 20131108
  Receipt Date: 20131108
  Transmission Date: 20140711
  Serious: Yes (Death, Hospitalization)
  Sender: FDA-Public Use
  Company Number: CA-ROCHE-1298148

PATIENT
  Age: 44 Year
  Sex: Female

DRUGS (5)
  1. XELODA [Suspect]
     Indication: PRODUCT USED FOR UNKNOWN INDICATION
     Route: 065
  2. TYKERB [Suspect]
     Indication: PRODUCT USED FOR UNKNOWN INDICATION
     Route: 048
  3. CITALOPRAM [Concomitant]
     Route: 065
  4. DENOSUMAB [Concomitant]
     Route: 065
  5. PERINDOPRIL [Concomitant]

REACTIONS (6)
  - Metastases to central nervous system [Fatal]
  - Diarrhoea [Fatal]
  - Eating disorder [Fatal]
  - Epigastric discomfort [Fatal]
  - Pain in extremity [Fatal]
  - Vomiting [Fatal]
